FAERS Safety Report 6543455-9 (Version None)
Quarter: 2010Q1

REPORT INFORMATION
  Report Type: 
  Country: None (occurrence: None)
  Receive Date: 20100120
  Receipt Date: 20100108
  Transmission Date: 20100710
  Serious: Yes (Other)
  Sender: FDA-Public Use
  Company Number: A0840054A

PATIENT
  Age: 31 Year
  Sex: Female

DRUGS (6)
  1. KEPPRA [Suspect]
     Indication: EPILEPSY
     Dosage: 1000MG PER DAY
     Route: 048
     Dates: start: 20080601, end: 20090101
  2. LEVETIRACETAM [Suspect]
     Indication: EPILEPSY
     Dosage: 1500MG PER DAY
     Route: 048
     Dates: start: 20090101
  3. LAMICTAL [Suspect]
     Indication: EPILEPSY
     Dosage: 500MG PER DAY
     Route: 048
  4. VITAMIN TAB [Concomitant]
     Indication: PREGNANCY
     Dosage: 1TAB PER DAY
     Route: 048
     Dates: start: 20090220
  5. FOLIC ACID [Concomitant]
     Indication: PREGNANCY
     Dosage: 1MG PER DAY
     Route: 048
     Dates: start: 20090403
  6. ETHYL ALCOHOL [Concomitant]
     Route: 048

REACTIONS (5)
  - ALCOHOL USE [None]
  - COMPLEX PARTIAL SEIZURES [None]
  - DRUG EXPOSURE DURING PREGNANCY [None]
  - LIVE BIRTH [None]
  - LOSS OF CONSCIOUSNESS [None]
